FAERS Safety Report 9793146 (Version 1)
Quarter: 2014Q1

REPORT INFORMATION
  Report Type: Spontaneous
  Country: US (occurrence: US)
  Receive Date: 20140102
  Receipt Date: 20140102
  Transmission Date: 20141002
  Serious: No
  Sender: FDA-Public Use
  Company Number: US-BAYER-2013-158825

PATIENT
  Age: 88 Year
  Sex: Male
  Weight: 76 kg

DRUGS (5)
  1. ALEVE CAPLET [Suspect]
     Indication: ARTHRITIS
     Dosage: 1 DF, PRN
     Route: 048
     Dates: start: 201312
  2. ASPIRIN [Concomitant]
  3. COD LIVER OIL [Concomitant]
  4. IRON [FERROUS SULFATE] [Concomitant]
  5. VITAMIN B1 [Concomitant]

REACTIONS (1)
  - Drug ineffective [None]
